FAERS Safety Report 19380942 (Version 1)
Quarter: 2021Q2

REPORT INFORMATION
  Report Type: Spontaneous
  Country: US (occurrence: US)
  Receive Date: 20210604
  Receipt Date: 20210604
  Transmission Date: 20210717
  Serious: Yes (Hospitalization)
  Sender: FDA-Public Use
  Company Number: None

PATIENT
  Age: 41 Year
  Sex: Male

DRUGS (3)
  1. GILENYA [Suspect]
     Active Substance: FINGOLIMOD HYDROCHLORIDE
     Indication: MULTIPLE SCLEROSIS
     Route: 048
     Dates: start: 20190618
  2. NORTRIPTYLIN [Concomitant]
     Active Substance: NORTRIPTYLINE
     Dates: start: 20210512
  3. OXYCODONE [Concomitant]
     Active Substance: OXYCODONE
     Dates: start: 20210512

REACTIONS (2)
  - Upper limb fracture [None]
  - Therapy interrupted [None]

NARRATIVE: CASE EVENT DATE: 20210522
